FAERS Safety Report 7249971-9 (Version None)
Quarter: 2011Q1

REPORT INFORMATION
  Report Type: 
  Country: None (occurrence: None)
  Receive Date: 20110128
  Receipt Date: 20101019
  Transmission Date: 20110831
  Serious: No
  Sender: FDA-Public Use
  Company Number: A0893755A

PATIENT
  Sex: Female

DRUGS (2)
  1. WELLBUTRIN XL [Suspect]
     Dosage: 300MG PER DAY
     Route: 048
  2. RANITIDINE [Concomitant]

REACTIONS (2)
  - AMPHETAMINES POSITIVE [None]
  - DRUG SCREEN FALSE POSITIVE [None]
